FAERS Safety Report 18890663 (Version 1)
Quarter: 2021Q1

REPORT INFORMATION
  Report Type: Report from Study
  Country: JP (occurrence: JP)
  Receive Date: 20210215
  Receipt Date: 20210215
  Transmission Date: 20210420
  Serious: Yes (Death, Hospitalization, Other)
  Sender: FDA-Public Use
  Company Number: JP-AMGEN-JPNCT2020010203

PATIENT
  Age: 77 Year
  Sex: Male

DRUGS (37)
  1. DARBEPOETIN ALFA [Suspect]
     Active Substance: DARBEPOETIN ALFA
     Dosage: 240 MICROGRAM, QWK
     Route: 058
     Dates: start: 20190418, end: 20190425
  2. POLARAMINE [Concomitant]
     Active Substance: DEXCHLORPHENIRAMINE MALEATE
     Dosage: UNK
     Route: 065
     Dates: end: 20190328
  3. HYDROCORTONE [HYDROCORTISONE ACETATE] [Concomitant]
     Dosage: UNK
     Route: 065
     Dates: end: 20190328
  4. PREDONINE [Concomitant]
     Active Substance: PREDNISOLONE
     Indication: MICROSCOPIC POLYANGIITIS
     Dosage: UNK
     Route: 048
     Dates: end: 20200106
  5. CEFEPIME DIHYDROCHLORIDE [Concomitant]
     Active Substance: CEFEPIME HYDROCHLORIDE
     Dosage: UNK
     Route: 065
     Dates: end: 20191205
  6. DARBEPOETIN ALFA [Suspect]
     Active Substance: DARBEPOETIN ALFA
     Indication: MYELODYSPLASTIC SYNDROME
     Dosage: 120 MICROGRAM
     Route: 058
     Dates: start: 20180712, end: 20180712
  7. DARBEPOETIN ALFA [Suspect]
     Active Substance: DARBEPOETIN ALFA
     Dosage: 240 MICROGRAM, QWK
     Route: 058
     Dates: start: 20181129, end: 20190117
  8. TRANEXAMIC ACID. [Concomitant]
     Active Substance: TRANEXAMIC ACID
     Dosage: UNK
     Route: 048
     Dates: end: 20200106
  9. PICOSULFATE NA [Concomitant]
     Active Substance: SODIUM PICOSULFATE
     Dosage: UNK
     Route: 048
     Dates: end: 20200106
  10. SENNOSIDE A+B CALCIUM [Concomitant]
     Active Substance: SENNOSIDES A AND B
     Dosage: UNK
     Route: 048
     Dates: end: 20200106
  11. DARBEPOETIN ALFA [Suspect]
     Active Substance: DARBEPOETIN ALFA
     Dosage: 240 MICROGRAM, QWK
     Route: 058
     Dates: start: 20180719, end: 20181115
  12. DARBEPOETIN ALFA [Suspect]
     Active Substance: DARBEPOETIN ALFA
     Dosage: 240 MICROGRAM, QWK
     Route: 058
     Dates: start: 20190207, end: 20190312
  13. DARBEPOETIN ALFA [Suspect]
     Active Substance: DARBEPOETIN ALFA
     Dosage: 240 MICROGRAM, QWK
     Route: 058
     Dates: start: 20190613, end: 20190627
  14. DARBEPOETIN ALFA [Suspect]
     Active Substance: DARBEPOETIN ALFA
     Dosage: 240 MICROGRAM, Q2WK
     Route: 058
     Dates: start: 20190711, end: 20190725
  15. PRIMOBOLAN [METENOLONE ACETATE] [Concomitant]
     Active Substance: METHENOLONE ACETATE
     Indication: MYELODYSPLASTIC SYNDROME
     Dosage: 20 MG
     Route: 048
     Dates: end: 20200106
  16. MEROPENEM. [Concomitant]
     Active Substance: MEROPENEM
     Dosage: UNK
     Route: 065
     Dates: end: 20200108
  17. CALONAL [Concomitant]
     Active Substance: ACETAMINOPHEN
     Dosage: UNK
     Route: 048
     Dates: end: 20200106
  18. DARBEPOETIN ALFA [Suspect]
     Active Substance: DARBEPOETIN ALFA
     Dosage: 240 MICROGRAM
     Route: 058
     Dates: start: 20190601, end: 20190601
  19. QUETIAPINE [QUETIAPINE FUMARATE] [Concomitant]
     Active Substance: QUETIAPINE FUMARATE
     Dosage: UNK
     Route: 048
     Dates: end: 20191216
  20. CARBAZOCHROME SODIUM SULFONATE [Concomitant]
     Active Substance: CARBAZOCHROME SODIUM SULFONATE
     Dosage: UNK
     Route: 048
     Dates: end: 20200106
  21. DAIPHEN [Concomitant]
     Active Substance: SULFAMETHOXAZOLE\TRIMETHOPRIM
     Dosage: UNK
     Route: 048
     Dates: end: 20200106
  22. CEFTRIAXONE SODIUM HYDRATE [Concomitant]
     Active Substance: CEFTRIAXONE SODIUM
     Dosage: UNK
     Route: 065
     Dates: end: 20190203
  23. FAROM [Concomitant]
     Active Substance: FAROPENEM SODIUM
     Dosage: UNK
     Route: 048
     Dates: end: 20200106
  24. PREDONINE [PREDNISOLONE SODIUM SUCCINATE] [Concomitant]
     Active Substance: PREDNISOLONE SODIUM SUCCINATE
     Indication: MICROSCOPIC POLYANGIITIS
     Dosage: UNK
     Route: 065
     Dates: end: 20200109
  25. DARBEPOETIN ALFA [Suspect]
     Active Substance: DARBEPOETIN ALFA
     Dosage: 240 MICROGRAM
     Route: 058
     Dates: start: 20190509, end: 20190509
  26. LANSOPRAZOLE. [Concomitant]
     Active Substance: LANSOPRAZOLE
     Dosage: UNK
     Route: 048
     Dates: end: 20200106
  27. CEFTRIAXONE SODIUM HYDRATE [Concomitant]
     Active Substance: CEFTRIAXONE SODIUM
     Dosage: UNK
     Route: 065
     Dates: end: 20190403
  28. CEFTRIAXONE SODIUM HYDRATE [Concomitant]
     Active Substance: CEFTRIAXONE SODIUM
     Dosage: UNK
     Route: 065
     Dates: end: 20190726
  29. POLARAMINE [Concomitant]
     Active Substance: DEXCHLORPHENIRAMINE MALEATE
     Dosage: UNK
     Route: 065
     Dates: end: 20190726
  30. HYDROCORTONE [HYDROCORTISONE ACETATE] [Concomitant]
     Dosage: UNK
     Route: 065
     Dates: end: 20190126
  31. MEROPENEM. [Concomitant]
     Active Substance: MEROPENEM
     Dosage: UNK
     Route: 065
     Dates: end: 20190412
  32. CALONAL [Concomitant]
     Active Substance: ACETAMINOPHEN
     Dosage: UNK
     Route: 048
     Dates: end: 20190412
  33. GLAKAY [Concomitant]
     Active Substance: MENATETRENONE
     Dosage: UNK
     Route: 048
     Dates: end: 20200106
  34. DARBEPOETIN ALFA [Suspect]
     Active Substance: DARBEPOETIN ALFA
     Dosage: 240 MICROGRAM, QWK
     Route: 058
     Dates: start: 20190801, end: 20191128
  35. POLARAMINE [Concomitant]
     Active Substance: DEXCHLORPHENIRAMINE MALEATE
     Dosage: UNK
     Route: 065
     Dates: end: 20190126
  36. FAROM [Concomitant]
     Active Substance: FAROPENEM SODIUM
     Dosage: UNK
     Route: 048
     Dates: end: 20190419
  37. TAMIFLU [Concomitant]
     Active Substance: OSELTAMIVIR PHOSPHATE
     Dosage: UNK
     Route: 048
     Dates: end: 20191230

REACTIONS (8)
  - Bronchitis [Recovering/Resolving]
  - Death [Fatal]
  - C-reactive protein increased [Unknown]
  - Dementia Alzheimer^s type [Unknown]
  - Delirium [Unknown]
  - Pyrexia [Unknown]
  - Pneumonia [Unknown]
  - Pyrexia [Recovering/Resolving]

NARRATIVE: CASE EVENT DATE: 20190124
